FAERS Safety Report 24642854 (Version 3)
Quarter: 2025Q1

REPORT INFORMATION
  Report Type: Spontaneous
  Country: US (occurrence: US)
  Receive Date: 20241120
  Receipt Date: 20250220
  Transmission Date: 20250409
  Serious: Yes (Hospitalization, Other)
  Sender: PFIZER
  Company Number: US-PFIZER INC-202400303351

PATIENT
  Age: 52 Year
  Sex: Male
  Weight: 57.596 kg

DRUGS (5)
  1. OXBRYTA [Suspect]
     Active Substance: VOXELOTOR
     Indication: Haemoglobin decreased
     Dosage: 1500 MG, DAILY
     Route: 048
     Dates: start: 20220930, end: 202411
  2. BIKTARVY [Concomitant]
     Active Substance: BICTEGRAVIR SODIUM\EMTRICITABINE\TENOFOVIR ALAFENAMIDE FUMARATE
     Indication: HIV infection
     Dosage: [BICTEGRAVIR SODIUM 50 MG/[EMTRICITABINE 200 MG]/[TENOFOVIR ALAFENAMIDE FUMARATE 25 MG], DAILY
  3. FOLIC ACID [Concomitant]
     Active Substance: FOLIC ACID
     Indication: Sickle cell disease
     Dosage: 1 MG, DAILY
  4. ENDARI [Concomitant]
     Active Substance: GLUTAMINE
     Indication: Sickle cell disease
     Dosage: 2 PACK
  5. PERCOCET [Concomitant]
     Active Substance: ACETAMINOPHEN\OXYCODONE HYDROCHLORIDE
     Indication: Sickle cell disease

REACTIONS (5)
  - Head injury [Recovered/Resolved]
  - Nasal injury [Unknown]
  - Loss of consciousness [Recovered/Resolved]
  - Fall [Recovered/Resolved]
  - Recalled product administered [Unknown]

NARRATIVE: CASE EVENT DATE: 20240101
